FAERS Safety Report 6381668-X (Version None)
Quarter: 2009Q3

REPORT INFORMATION
  Report Type: 
  Country: None (occurrence: None)
  Receive Date: 20090930
  Receipt Date: 20090915
  Transmission Date: 20100115
  Serious: Yes (Other)
  Sender: FDA-Public Use
  Company Number: PHEH2007US12470

PATIENT
  Sex: Female

DRUGS (2)
  1. AREDIA [Suspect]
     Indication: OSTEITIS DEFORMANS
  2. PAMIDRONATE DISODIUM [Suspect]

REACTIONS (42)
  - ACQUIRED DIAPHRAGMATIC EVENTRATION [None]
  - ANAEMIA [None]
  - ANHEDONIA [None]
  - ANXIETY [None]
  - AORTIC ARTERIOSCLEROSIS [None]
  - BONE DISORDER [None]
  - CARDIAC ARREST [None]
  - CATHETER RELATED INFECTION [None]
  - DEFORMITY [None]
  - DENTAL FISTULA [None]
  - DIABETES MELLITUS [None]
  - DIARRHOEA [None]
  - DISCOMFORT [None]
  - EMOTIONAL DISTRESS [None]
  - ENDODONTIC PROCEDURE [None]
  - FISTULA [None]
  - GLOSSODYNIA [None]
  - GOUT [None]
  - HYPOPHAGIA [None]
  - HYPOTENSION [None]
  - INFECTION [None]
  - INFECTION SUSCEPTIBILITY INCREASED [None]
  - INJURY [None]
  - LEFT VENTRICULAR HYPERTROPHY [None]
  - LIFE EXPECTANCY SHORTENED [None]
  - OSTEOMYELITIS [None]
  - OSTEONECROSIS [None]
  - PAIN [None]
  - PAIN IN JAW [None]
  - PHYSICAL DISABILITY [None]
  - PULMONARY VALVE INCOMPETENCE [None]
  - RHEUMATOID ARTHRITIS [None]
  - SINUS BRADYCARDIA [None]
  - SLEEP APNOEA SYNDROME [None]
  - SWELLING [None]
  - SYNCOPE [None]
  - THROMBOSIS [None]
  - TOOTH EXTRACTION [None]
  - TOOTH INFECTION [None]
  - TRICUSPID VALVE INCOMPETENCE [None]
  - VERTIGO [None]
  - WHEEZING [None]
